FAERS Safety Report 8355688-X (Version None)
Quarter: 2012Q2

REPORT INFORMATION
  Report Type: 
  Country: None (occurrence: None)
  Receive Date: 20120514
  Receipt Date: 20120504
  Transmission Date: 20120825
  Serious: Yes (Hospitalization)
  Sender: FDA-Public Use
  Company Number: US-BIOGENIDEC-2012BI015915

PATIENT
  Age: 41 Year
  Sex: Male

DRUGS (1)
  1. AVONEX [Suspect]
     Indication: MULTIPLE SCLEROSIS
     Route: 030

REACTIONS (8)
  - DIPLOPIA [None]
  - VERTIGO [None]
  - INCONTINENCE [None]
  - HYPOAESTHESIA [None]
  - NAUSEA [None]
  - CONVULSION [None]
  - VOMITING [None]
  - HEADACHE [None]
